FAERS Safety Report 12115768 (Version 2)
Quarter: 2016Q1

REPORT INFORMATION
  Report Type: Spontaneous
  Country: US (occurrence: US)
  Receive Date: 20160225
  Receipt Date: 20160315
  Transmission Date: 20160526
  Serious: No
  Sender: FDA-Public Use
  Company Number: US-PFIZER INC-2016099717

PATIENT
  Age: 68 Year
  Sex: Female
  Weight: 88.43 kg

DRUGS (2)
  1. TYLENOL PM [Concomitant]
     Active Substance: ACETAMINOPHEN\DIPHENHYDRAMINE
     Dosage: UNK UNK, AS NEEDED
  2. SUTENT [Suspect]
     Active Substance: SUNITINIB MALATE
     Indication: METASTATIC RENAL CELL CARCINOMA
     Dosage: 25 MG, CYCLIC (3 WEEKS ON/1 WEEK OFF)
     Dates: start: 20160202

REACTIONS (4)
  - Asthenia [Unknown]
  - Ageusia [Unknown]
  - Fatigue [Unknown]
  - Dysgeusia [Unknown]
